FAERS Safety Report 9504560 (Version 2)
Quarter: 2013Q4

REPORT INFORMATION
  Report Type: Spontaneous
  Country: ES (occurrence: NL)
  Receive Date: 20130906
  Receipt Date: 20131022
  Transmission Date: 20140711
  Serious: Yes (Other)
  Sender: FDA-Public Use
  Company Number: NL-FRI-1000048465

PATIENT
  Sex: Female

DRUGS (11)
  1. ACLIDINIUM [Suspect]
     Dates: start: 20130517, end: 20130526
  2. FLUIMUCIL [Concomitant]
  3. ATORVASTATINE [Concomitant]
  4. BUMETANIDE [Concomitant]
  5. CALCI CHEW D3 [Concomitant]
  6. ACTONEL [Concomitant]
  7. ASCAL [Concomitant]
  8. TILDIEM [Concomitant]
  9. OXIS [Concomitant]
  10. ATROVENT [Concomitant]
  11. PREDNISONE [Concomitant]
     Dosage: 1 DF

REACTIONS (5)
  - Oxygen saturation decreased [Recovered/Resolved]
  - Urticaria [Recovering/Resolving]
  - Pruritus [Recovering/Resolving]
  - Cough [Recovering/Resolving]
  - Dyspnoea [Recovering/Resolving]
